FAERS Safety Report 4564041-6 (Version None)
Quarter: 2005Q1

REPORT INFORMATION
  Report Type: 
  Country: None (occurrence: None)
  Receive Date: 20050128
  Receipt Date: 20040913
  Transmission Date: 20050727
  Serious: No
  Sender: FDA-Public Use
  Company Number: US-BRISTOL-MYERS SQUIBB COMPANY-12700571

PATIENT
  Age: 63 Year
  Sex: Female
  Weight: 51 kg

DRUGS (4)
  1. CEFZIL [Suspect]
     Indication: EAR INFECTION
     Dosage: INTERRUPTED ON 27-AUG-2004, RESUMED ON 07-SEP-2004 AT 250 MG ONCE DAILY
     Route: 048
     Dates: start: 20040823, end: 20040912
  2. FOSAMAX [Concomitant]
  3. MULTIVITAMIN [Concomitant]
  4. CALCIUM GLUCONATE [Concomitant]

REACTIONS (5)
  - CHEST DISCOMFORT [None]
  - DIZZINESS [None]
  - NERVOUSNESS [None]
  - PSYCHOMOTOR HYPERACTIVITY [None]
  - RASH PRURITIC [None]
